FAERS Safety Report 7357588-0 (Version None)
Quarter: 2011Q1

REPORT INFORMATION
  Report Type: 
  Country: None (occurrence: None)
  Receive Date: 20110317
  Receipt Date: 20110307
  Transmission Date: 20110831
  Serious: Yes (Other)
  Sender: FDA-Public Use
  Company Number: US-CELGENEUS-163-21880-11031128

PATIENT
  Sex: Female
  Weight: 132 kg

DRUGS (5)
  1. REVLIMID [Suspect]
     Dosage: 10 MILLIGRAM
     Route: 048
     Dates: start: 20090413, end: 20100107
  2. ACTOS [Suspect]
     Dosage: 15 MILLIGRAM
     Route: 065
  3. JANUVIA [Concomitant]
     Dosage: 100 MILLIGRAM
     Route: 065
  4. REVLIMID [Suspect]
     Dosage: 10 MILLIGRAM
     Route: 048
     Dates: start: 20101211
  5. ACTOS [Suspect]
     Dosage: 45 MILLIGRAM
     Route: 065

REACTIONS (3)
  - WEIGHT INCREASED [None]
  - DYSPNOEA [None]
  - OEDEMA PERIPHERAL [None]
